FAERS Safety Report 5531556-3 (Version None)
Quarter: 2007Q4

REPORT INFORMATION
  Report Type: 
  Country: None (occurrence: None)
  Receive Date: 20071203
  Receipt Date: 20071129
  Transmission Date: 20080405
  Serious: Yes (Life-Threatening)
  Sender: FDA-Public Use
  Company Number: PHEH2007US15258

PATIENT
  Sex: Male

DRUGS (2)
  1. TOBI [Suspect]
     Indication: LUNG INFECTION
     Dosage: UNK, UNK
     Dates: start: 20071101, end: 20071106
  2. ALBUTEROL [Concomitant]

REACTIONS (5)
  - DIZZINESS [None]
  - DYSPNOEA [None]
  - FEELING ABNORMAL [None]
  - HEADACHE [None]
  - TINNITUS [None]
